FAERS Safety Report 4922138-2 (Version None)
Quarter: 2006Q1

REPORT INFORMATION
  Report Type: 
  Country: None (occurrence: None)
  Receive Date: 20060224
  Receipt Date: 20060215
  Transmission Date: 20060701
  Serious: Yes (Other)
  Sender: FDA-Public Use
  Company Number: US-JNJFOC-20060204015

PATIENT
  Age: 54 Year
  Sex: Female
  Weight: 104.33 kg

DRUGS (10)
  1. TOPAMAX [Suspect]
     Indication: MIGRAINE PROPHYLAXIS
     Route: 048
  2. STEROID BLOCK CERVICAL [Concomitant]
  3. HYDROCODONE BITARTRATE [Concomitant]
     Indication: PAIN
  4. XANAX [Concomitant]
  5. PHENERGAN [Concomitant]
     Indication: VOMITING
     Dosage: PRN
  6. BACLOFEN [Concomitant]
  7. AMERGE [Concomitant]
     Indication: MIGRAINE
     Dosage: AS NEEDED
  8. RESTORIL [Concomitant]
     Indication: SLEEP DISORDER
  9. NEXIUM [Concomitant]
  10. COMPAZINE [Concomitant]
     Indication: VOMITING
     Dosage: PRN

REACTIONS (4)
  - BODY TEMPERATURE INCREASED [None]
  - DYSGEUSIA [None]
  - TACHYCARDIA [None]
  - WHITE BLOOD CELL COUNT INCREASED [None]
